FAERS Safety Report 6645714-8 (Version None)
Quarter: 2010Q1

REPORT INFORMATION
  Report Type: 
  Country: None (occurrence: None)
  Receive Date: 20100318
  Receipt Date: 20100308
  Transmission Date: 20100710
  Serious: No
  Sender: FDA-Public Use
  Company Number: 518026

PATIENT
  Age: 18 Year
  Sex: Female
  Weight: 82 kg

DRUGS (4)
  1. DIAZEPAM [Suspect]
     Indication: SEDATIVE THERAPY
     Dosage: TITRATED, INTRAVENOUS
     Route: 042
     Dates: start: 20100225, end: 20100201
  2. DIAZEPAM [Suspect]
     Indication: SEDATIVE THERAPY
     Dosage: TITRATED, INTRAVENOUS
     Route: 042
     Dates: start: 20100215, end: 20100225
  3. FENTANYL CITRATE [Concomitant]
  4. INJECTION, USP, 50 MCG [Concomitant]

REACTIONS (5)
  - BLOOD PRESSURE INCREASED [None]
  - DYSKINESIA [None]
  - DYSPNOEA [None]
  - LOSS OF CONSCIOUSNESS [None]
  - SINUS TACHYCARDIA [None]
